FAERS Safety Report 5290564-0 (Version None)
Quarter: 2007Q2

REPORT INFORMATION
  Report Type: 
  Country: None (occurrence: None)
  Receive Date: 20070405
  Receipt Date: 20070405
  Transmission Date: 20071010
  Serious: No
  Sender: FDA-Public Use
  Company Number: None

PATIENT
  Sex: Male
  Weight: 75.9 kg

DRUGS (3)
  1. TEMOZOLOMIDE 2400 MG [Suspect]
     Dosage: 2400 MG
  2. DECADRON [Concomitant]
  3. DILANTIN [Concomitant]

REACTIONS (1)
  - ALANINE AMINOTRANSFERASE INCREASED [None]
